FAERS Safety Report 8247419-9 (Version None)
Quarter: 2012Q1

REPORT INFORMATION
  Report Type: 
  Country: None (occurrence: None)
  Receive Date: 20120330
  Receipt Date: 20120327
  Transmission Date: 20120608
  Serious: Yes (Hospitalization)
  Sender: FDA-Public Use
  Company Number: JP-ABBOTT-12P-087-0916937-00

PATIENT
  Age: 35 Year
  Sex: Female

DRUGS (10)
  1. SENNOSIDE [Concomitant]
     Indication: LAXATIVE SUPPORTIVE CARE
  2. CLOSTRIDIUM BUTYRICUM [Concomitant]
     Indication: CROHN'S DISEASE
     Route: 048
     Dates: start: 20120305
  3. FULCALIQ [Concomitant]
     Indication: PARENTERAL NUTRITION
     Route: 042
     Dates: start: 20120305
  4. HUMIRA [Suspect]
     Indication: CROHN'S DISEASE
     Route: 058
     Dates: start: 20120314, end: 20120314
  5. CEFOZOPRAN HYDROCHLORIDE [Concomitant]
     Indication: INFECTION
     Route: 042
     Dates: start: 20120305, end: 20120307
  6. LEVOFLOXACIN HYDRATE [Concomitant]
     Indication: INFECTION
     Route: 048
     Dates: start: 20120305, end: 20120307
  7. REBAMIPIDE [Concomitant]
     Indication: PRODUCT USED FOR UNKNOWN INDICATION
     Dosage: 100 MG X 3
     Route: 048
     Dates: start: 20120305
  8. FERRIC OXIDE, SACCHARATED [Concomitant]
     Indication: PARENTERAL NUTRITION
     Route: 042
     Dates: start: 20120305, end: 20120319
  9. MESALAMINE [Concomitant]
     Indication: CROHN'S DISEASE
     Route: 048
     Dates: start: 20120305
  10. SENNOSIDE [Concomitant]
     Indication: X-RAY WITH CONTRAST UPPER GASTROINTESTINAL TRACT
     Route: 048

REACTIONS (3)
  - LIVER DISORDER [None]
  - PRURITUS [None]
  - SNEEZING [None]
